FAERS Safety Report 5000897-0 (Version None)
Quarter: 2006Q2

REPORT INFORMATION
  Report Type: 
  Country: None (occurrence: None)
  Receive Date: 20060512
  Receipt Date: 20051214
  Transmission Date: 20061013
  Serious: No
  Sender: FDA-Public Use
  Company Number: US-GLAXOSMITHKLINE-A0585876A

PATIENT
  Age: 61 Year
  Sex: Female

DRUGS (12)
  1. RELAFEN [Suspect]
     Indication: MORTON'S NEUROMA
     Dosage: 750MG TWICE PER DAY
     Route: 048
  2. RANITIDINE [Suspect]
     Indication: DRUG USE FOR UNKNOWN INDICATION
     Route: 065
  3. IMODIUM [Concomitant]
  4. NEURONTIN [Concomitant]
  5. PAMELOR [Concomitant]
  6. ALLOPURINOL [Concomitant]
  7. ULTRAM [Concomitant]
  8. ZOCOR [Concomitant]
  9. TRENTAL [Concomitant]
  10. BENICAR [Concomitant]
  11. UNKNOWN MEDICATION [Concomitant]
     Route: 065
  12. PROGESTERONE [Concomitant]

REACTIONS (1)
  - DIARRHOEA [None]
